FAERS Safety Report 21979349 (Version 1)
Quarter: 2023Q1

REPORT INFORMATION
  Report Type: Spontaneous
  Country: US (occurrence: US)
  Receive Date: 20230210
  Receipt Date: 20230210
  Transmission Date: 20230418
  Serious: No
  Sender: FDA-Public Use
  Company Number: US-GLAXOSMITHKLINE-USCH2023005806

PATIENT
  Age: 81 Year

DRUGS (3)
  1. NICODERM CQ [Suspect]
     Active Substance: NICOTINE
     Indication: Smoking cessation therapy
     Dosage: 14 MG
     Dates: start: 202301
  2. NICODERM CQ [Suspect]
     Active Substance: NICOTINE
     Indication: Smoking cessation therapy
     Dosage: 7 MG
     Dates: start: 202301
  3. NICODERM CQ [Suspect]
     Active Substance: NICOTINE

REACTIONS (3)
  - Skin burning sensation [Unknown]
  - Application site erythema [Unknown]
  - Dermatitis contact [Unknown]

NARRATIVE: CASE EVENT DATE: 20230101
